FAERS Safety Report 17467603 (Version 3)
Quarter: 2020Q2

REPORT INFORMATION
  Report Type: Spontaneous
  Country: US (occurrence: US)
  Receive Date: 20200227
  Receipt Date: 20200622
  Transmission Date: 20200713
  Serious: Yes (Other)
  Sender: FDA-Public Use
  Company Number: US-PFIZER INC-2019466097

PATIENT
  Age: 74 Year
  Sex: Female
  Weight: 93.5 kg

DRUGS (3)
  1. IBRANCE [Suspect]
     Active Substance: PALBOCICLIB
     Indication: BREAST CANCER METASTATIC
     Dosage: 100 MG, 1X/DAY (ONCE A DAY 3 WEEKS)
     Route: 048
     Dates: start: 2019
  2. IBRANCE [Suspect]
     Active Substance: PALBOCICLIB
     Indication: BREAST CANCER FEMALE
     Dosage: 125 MG, DAILY (EVERYDAY)
     Route: 048
  3. LETROZOLE. [Concomitant]
     Active Substance: LETROZOLE
     Dosage: 2.5 MG
     Dates: start: 201905

REACTIONS (8)
  - Sleep disorder [Unknown]
  - Abdominal discomfort [Recovering/Resolving]
  - Fall [Recovered/Resolved]
  - Product shape issue [Unknown]
  - Clavicle fracture [Recovering/Resolving]
  - Joint injury [Unknown]
  - Chest injury [Recovered/Resolved]
  - Product odour abnormal [Unknown]

NARRATIVE: CASE EVENT DATE: 201904
